FAERS Safety Report 18492946 (Version 1)
Quarter: 2020Q4

REPORT INFORMATION
  Report Type: Report from Study
  Country: DE (occurrence: DE)
  Receive Date: 20201111
  Receipt Date: 20201111
  Transmission Date: 20210114
  Serious: Yes (Hospitalization)
  Sender: FDA-Public Use
  Company Number: DE-TAKEDA-DE202034531

PATIENT

DRUGS (2)
  1. IDURSULFASE [Suspect]
     Active Substance: IDURSULFASE
     Dosage: 0.55 MILLIGRAM/KILOGRAM
     Route: 042
     Dates: start: 20150706
  2. IDURSULFASE [Suspect]
     Active Substance: IDURSULFASE
     Indication: MUCOPOLYSACCHARIDOSIS II
     Dosage: 0.55 MILLIGRAM/KILOGRAM, 1/WEEK
     Route: 042
     Dates: start: 20061128

REACTIONS (1)
  - Sleep study [Unknown]
